FAERS Safety Report 8623091-0 (Version None)
Quarter: 2012Q3

REPORT INFORMATION
  Report Type: 
  Country: None (occurrence: None)
  Receive Date: 20120827
  Receipt Date: 20120815
  Transmission Date: 20120928
  Serious: Yes (Other)
  Sender: FDA-Public Use
  Company Number: US-JNJFOC-20120613156

PATIENT
  Sex: Female
  Weight: 71.67 kg

DRUGS (10)
  1. TESSALON [Concomitant]
     Indication: COUGH
     Dosage: JAN-2012, NOV-2011 AND MAY-2012 (START OR STOP DATES NOT CLARIFIED)
     Route: 048
  2. CRESTOR [Concomitant]
     Indication: BLOOD CHOLESTEROL INCREASED
     Dosage: NOV-2011 AND MAY-2012 (START OR STOP DATES NOT CLARIFIED)
     Route: 065
     Dates: start: 20111101, end: 20120501
  3. FLONASE [Concomitant]
     Indication: RHINITIS ALLERGIC
     Dosage: NOV-2011 AND MAY-2012 (START OR STOP DATES NOT CLARIFIED)
     Route: 065
  4. RISPERDAL [Suspect]
     Indication: SCHIZOPHRENIA
     Dosage: 1 MG NIGHTLY
     Route: 048
     Dates: start: 20080101
  5. RISPERDAL [Suspect]
     Route: 048
     Dates: start: 20040101, end: 20080101
  6. RISPERDAL [Suspect]
     Route: 048
     Dates: start: 20040101, end: 20080101
  7. BENADRYL [Concomitant]
     Indication: COUGH
     Dosage: MAY-2012 (START OR STOP DATE NOT CLARIFIED)
     Route: 065
  8. RISPERDAL [Suspect]
     Indication: BIPOLAR DISORDER
     Dosage: 1 MG NIGHTLY
     Route: 048
     Dates: start: 20080101
  9. RISPERIDONE [Suspect]
     Indication: SCHIZOPHRENIA
     Dosage: 1 MG NIGHTLY
     Route: 048
  10. RISPERIDONE [Suspect]
     Indication: BIPOLAR DISORDER
     Dosage: 1 MG NIGHTLY
     Route: 048

REACTIONS (6)
  - INTERSTITIAL LUNG DISEASE [None]
  - SOMNOLENCE [None]
  - ANXIETY [None]
  - BRONCHITIS [None]
  - INSOMNIA [None]
  - PNEUMONIA [None]
